FAERS Safety Report 9160016 (Version 1)
Quarter: 2013Q1

REPORT INFORMATION
  Report Type: Spontaneous
  Country: US (occurrence: None)
  Receive Date: 20130220
  Receipt Date: 20130220
  Transmission Date: 20140127
  Serious: Yes (Hospitalization)
  Sender: FDA-Public Use
  Company Number: UTC-029024

PATIENT
  Age: 57 Year
  Sex: Male
  Weight: 117.3 kg

DRUGS (9)
  1. REMODULIN (INJECTION FOR INFUSION) (TREPROSTINIL SODIUM) [Suspect]
     Indication: PULMONARY ARTERIAL HYPERTENSION
     Dosage: 28,8 UG/KG (0.02 UG/KG, 1 IN 1 MIN), SUBCUTANEOUS?
     Route: 058
     Dates: start: 20121201
  2. NON-TYVASO (BOSENTAN) (UNKNOWN) (BOSENTAN) [Suspect]
     Indication: PULMONARY ARTERIAL HYPERTENSION
     Dates: start: 20120404
  3. LASIX (FUROSEMIDE) (UNKNOWN) [Concomitant]
  4. COLCHICINE  (UNKNOWN)) [Concomitant]
  5. AVODART (DUTASTERIDE)  (UNKNOWN) [Concomitant]
  6. SIMVASTATIN (UNKNOWN) [Concomitant]
  7. AMLODIPINE BESILATE (UNKNOWN) [Concomitant]
  8. SALBUTAMOL (UNKNOWN) [Concomitant]
  9. FLOMAX (TAMSULOSIN HYDROCHLORIDE) (UNKNOWN) [Concomitant]

REACTIONS (3)
  - Syncope [None]
  - Pulmonary arterial hypertension [None]
  - Condition aggravated [None]
